FAERS Safety Report 19672821 (Version 2)
Quarter: 2021Q3

REPORT INFORMATION
  Report Type: Report from Study
  Country: US (occurrence: US)
  Receive Date: 20210809
  Receipt Date: 20210925
  Transmission Date: 20211014
  Serious: Yes (Hospitalization, Other)
  Sender: FDA-Public Use
  Company Number: NVSC2021US174494

PATIENT
  Sex: Female

DRUGS (2)
  1. ENTRESTO [Suspect]
     Active Substance: SACUBITRIL\VALSARTAN
     Indication: CARDIAC FAILURE
     Dosage: 50 MG (24/26 MG),  UNKNOWN
     Route: 048
     Dates: start: 20201208
  2. ENTRESTO [Suspect]
     Active Substance: SACUBITRIL\VALSARTAN
     Dosage: 50 MG (24/26 MG), BID
     Route: 048
     Dates: start: 202012

REACTIONS (11)
  - Thrombosis [Unknown]
  - Cholelithiasis [Unknown]
  - Colitis [Unknown]
  - Pain [Unknown]
  - Renal failure [Unknown]
  - Haemorrhage [Unknown]
  - Gastrointestinal ulcer haemorrhage [Unknown]
  - Tremor [Unknown]
  - Cerebrovascular accident [Unknown]
  - Cataract [Unknown]
  - Cardiac disorder [Unknown]
